FAERS Safety Report 16102443 (Version 3)
Quarter: 2019Q2

REPORT INFORMATION
  Report Type: Spontaneous
  Country: FR (occurrence: FR)
  Receive Date: 20190321
  Receipt Date: 20190522
  Transmission Date: 20190711
  Serious: Yes (Other)
  Sender: FDA-Public Use
  Company Number: FR-ALLERGAN-1912094US

PATIENT
  Sex: Male

DRUGS (12)
  1. AMLOR [Concomitant]
     Active Substance: AMLODIPINE BESYLATE
     Indication: HYPERTENSION
     Dosage: UNK
     Route: 048
  2. PLAVIX [Concomitant]
     Active Substance: CLOPIDOGREL BISULFATE
     Indication: ANGIOPATHY
     Route: 048
  3. LERCAN [Concomitant]
     Active Substance: LERCANIDIPINE
     Route: 065
  4. OZURDEX [Suspect]
     Active Substance: DEXAMETHASONE
     Dosage: 0.7 MG, SINGLE
     Route: 031
     Dates: start: 2016, end: 2016
  5. MOPRAL [Concomitant]
     Active Substance: OMEPRAZOLE
     Route: 065
  6. EUPRESSYL [Concomitant]
     Active Substance: URAPIDIL
     Indication: HYPERTENSION
     Route: 048
  7. STAGID [Concomitant]
     Active Substance: METFORMIN PAMOATE
     Indication: DIABETES MELLITUS
     Dosage: 500 MG, UNK
     Route: 048
  8. TRULICITY [Concomitant]
     Active Substance: DULAGLUTIDE
     Indication: DIABETES MELLITUS
     Dosage: 0.75 MG, Q WEEK
     Route: 058
  9. OZURDEX [Suspect]
     Active Substance: DEXAMETHASONE
     Indication: CATARACT OPERATION
     Dosage: 0.7 MG, SINGLE
     Route: 031
     Dates: start: 20181127, end: 20181127
  10. GLICLAZIDE [Concomitant]
     Active Substance: GLICLAZIDE
     Indication: DIABETES MELLITUS
     Dosage: UNK
     Route: 048
  11. MICARDIS PLUS [Concomitant]
     Active Substance: HYDROCHLOROTHIAZIDE\TELMISARTAN
     Indication: HYPERTENSION
     Route: 048
  12. KARDEGIC [Concomitant]
     Active Substance: ASPIRIN DL-LYSINE
     Indication: ANGIOPATHY
     Route: 048

REACTIONS (4)
  - Cerebrovascular accident [Unknown]
  - Visual impairment [Not Recovered/Not Resolved]
  - Off label use [Unknown]
  - Product availability issue [Unknown]

NARRATIVE: CASE EVENT DATE: 201902
